FAERS Safety Report 9017606 (Version 2)
Quarter: 2013Q1

REPORT INFORMATION
  Report Type: Spontaneous
  Country: AU (occurrence: AU)
  Receive Date: 20130117
  Receipt Date: 20130215
  Transmission Date: 20140127
  Serious: Yes (Hospitalization)
  Sender: FDA-Public Use
  Company Number: AU-B.I. PHARMACEUTICALS,INC./RIDGEFIELD-2013-AU-00023AU

PATIENT
  Age: 77 Year
  Sex: Male

DRUGS (2)
  1. TRAJENTA [Suspect]
     Indication: TYPE 2 DIABETES MELLITUS
     Dates: start: 2012
  2. GLICLAZIDE [Concomitant]

REACTIONS (9)
  - Pancreatitis [Not Recovered/Not Resolved]
  - Cholelithiasis [Unknown]
  - Pyrexia [Unknown]
  - Chills [Unknown]
  - Hyperhidrosis [Unknown]
  - Malaise [Unknown]
  - Cholecystitis [Unknown]
  - Cardiomegaly [Unknown]
  - Atelectasis [Unknown]
